FAERS Safety Report 7771108-8 (Version None)
Quarter: 2011Q3

REPORT INFORMATION
  Report Type: 
  Country: None (occurrence: None)
  Receive Date: 20110922
  Receipt Date: 20110913
  Transmission Date: 20111222
  Serious: Yes (Disabling)
  Sender: FDA-Public Use
  Company Number: US-ASTRAZENECA-2011SE48507

PATIENT
  Age: 40 Year
  Sex: Male
  Weight: 53.5 kg

DRUGS (3)
  1. SEROQUEL [Suspect]
     Indication: AFFECTIVE DISORDER
     Route: 048
  2. SEROQUEL [Suspect]
     Route: 048
     Dates: start: 20110101, end: 20110908
  3. ZOLOFT [Concomitant]
     Route: 048
     Dates: start: 20080501

REACTIONS (5)
  - HEADACHE [None]
  - MYALGIA [None]
  - FEELING ABNORMAL [None]
  - OFF LABEL USE [None]
  - DYSPHORIA [None]
